FAERS Safety Report 16223895 (Version 2)
Quarter: 2019Q2

REPORT INFORMATION
  Report Type: Report from Study
  Country: JP (occurrence: JP)
  Receive Date: 20190422
  Receipt Date: 20190517
  Transmission Date: 20190711
  Serious: Yes (Hospitalization, Other)
  Sender: FDA-Public Use
  Company Number: JP-EXELIXIS-XL18419020430

PATIENT
  Age: 81 Year
  Sex: Male
  Weight: 56.4 kg

DRUGS (14)
  1. EPALRESTAT [Concomitant]
     Active Substance: EPALRESTAT
     Indication: GLUCOSE TOLERANCE IMPAIRED
     Dosage: 50 MG, TID
     Route: 048
     Dates: start: 20180820
  2. GLIMEPIRIDE. [Concomitant]
     Active Substance: GLIMEPIRIDE
     Indication: GLUCOSE TOLERANCE IMPAIRED
     Dosage: 0.5 MG, BID
     Route: 048
     Dates: start: 20180608
  3. TAKECAB [Concomitant]
     Active Substance: VONOPRAZAN FUMURATE
     Indication: PROPHYLAXIS
     Dosage: 20 MG, QD
     Route: 048
     Dates: start: 20180618
  4. ALLELOCK [Concomitant]
     Active Substance: OLOPATADINE HYDROCHLORIDE
     Indication: PROPHYLAXIS
     Dosage: 5 MG, BID
     Route: 048
     Dates: start: 20171204
  5. ALDACTONE A [Concomitant]
     Active Substance: SPIRONOLACTONE
     Indication: HYPERTENSION
     Dosage: 25 MG, QD
     Route: 048
     Dates: start: 20180205
  6. AMLODIN [Concomitant]
     Active Substance: AMLODIPINE BESYLATE
     Indication: HYPERTENSION
     Dosage: 5 MG, QD
     Route: 048
     Dates: start: 20171218
  7. POLARAMINE [Concomitant]
     Active Substance: DEXCHLORPHENIRAMINE MALEATE
     Indication: PROPHYLAXIS
     Dosage: 2 MG, QD
     Route: 048
     Dates: start: 20181214
  8. CABOZANTINIB [Suspect]
     Active Substance: CABOZANTINIB
     Dosage: 20 MG, QD
     Route: 048
     Dates: start: 20190315, end: 20190408
  9. BIO-THREE [Concomitant]
     Active Substance: HERBALS
     Indication: PROPHYLAXIS
     Dosage: 2 DF, TID
     Route: 048
     Dates: start: 20181026
  10. URSODEOXYCHOLIC ACID [Concomitant]
     Active Substance: URSODIOL
     Indication: PROPHYLAXIS
     Dosage: 100 MG, TID
     Route: 048
     Dates: start: 20180820
  11. CABOZANTINIB [Suspect]
     Active Substance: CABOZANTINIB
     Indication: HEPATOCELLULAR CARCINOMA
     Dosage: 60 MG, QD
     Route: 048
     Dates: start: 20180907, end: 20181003
  12. CABOZANTINIB [Suspect]
     Active Substance: CABOZANTINIB
     Dosage: 40 MG, QD
     Route: 048
     Dates: start: 20181012, end: 20190307
  13. BROTIZOLAM [Concomitant]
     Active Substance: BROTIZOLAM
     Indication: INSOMNIA
     Dosage: UNK UNK, QD
     Route: 048
     Dates: start: 20180608
  14. LOPERAMIDE [Concomitant]
     Active Substance: LOPERAMIDE
     Indication: DIARRHOEA
     Dosage: 1 MG, BID
     Route: 048
     Dates: start: 20181116

REACTIONS (1)
  - Meningitis bacterial [Recovered/Resolved with Sequelae]

NARRATIVE: CASE EVENT DATE: 20190409
